FAERS Safety Report 23759883 (Version 1)
Quarter: 2024Q2

REPORT INFORMATION
  Report Type: Spontaneous
  Country: US (occurrence: US)
  Receive Date: 20240419
  Receipt Date: 20240419
  Transmission Date: 20240715
  Serious: Yes (Other)
  Sender: FDA-Public Use
  Company Number: US-ENDO PHARMACEUTICALS INC-2024-001674

PATIENT
  Sex: Male

DRUGS (14)
  1. TESTOPEL [Suspect]
     Active Substance: TESTOSTERONE
     Indication: Blood testosterone decreased
     Dosage: UNK UNKNOWN, UNKNOWN (STARTING DOSE, LOWER THAN 900MG ON 19-DEC (4-5 YEARS AGO))
     Route: 065
  2. TESTOPEL [Suspect]
     Active Substance: TESTOSTERONE
     Indication: Blood testosterone decreased
     Dosage: UNK UNKNOWN, UNKNOWN (STARTING DOSE, LOWER THAN 900MG ON 19-DEC (4-5 YEARS AGO))
     Route: 065
  3. TESTOPEL [Suspect]
     Active Substance: TESTOSTERONE
     Indication: Blood testosterone decreased
     Dosage: UNK UNKNOWN, UNKNOWN (STARTING DOSE, LOWER THAN 900MG ON 19-DEC (4-5 YEARS AGO))
     Route: 065
  4. TESTOPEL [Suspect]
     Active Substance: TESTOSTERONE
     Dosage: UNK UNKNOWN, UNKNOWN (DOSE GRADUALLY INCREASED OVER TIME EVERY 3 MONTHS)
     Route: 065
  5. TESTOPEL [Suspect]
     Active Substance: TESTOSTERONE
     Dosage: UNK UNKNOWN, UNKNOWN (DOSE GRADUALLY INCREASED OVER TIME EVERY 3 MONTHS)
     Route: 065
  6. TESTOPEL [Suspect]
     Active Substance: TESTOSTERONE
     Dosage: UNK UNKNOWN, UNKNOWN (DOSE GRADUALLY INCREASED OVER TIME EVERY 3 MONTHS)
     Route: 065
  7. TESTOPEL [Suspect]
     Active Substance: TESTOSTERONE
     Dosage: 900 MILLIGRAM (12 PELLETS), UNKNOWN
     Route: 065
     Dates: start: 20240403
  8. TESTOPEL [Suspect]
     Active Substance: TESTOSTERONE
     Dosage: 900 MILLIGRAM (12 PELLETS), UNKNOWN
     Route: 065
     Dates: start: 20240403
  9. TESTOPEL [Suspect]
     Active Substance: TESTOSTERONE
     Dosage: 900 MILLIGRAM (12 PELLETS), UNKNOWN
     Route: 065
     Dates: start: 20240403
  10. MOUNJARO [Concomitant]
     Active Substance: TIRZEPATIDE
     Indication: Diabetes mellitus
     Dosage: UNK UNKNOWN, UNKNOWN
     Route: 065
     Dates: start: 2022
  11. EFFEXOR [Concomitant]
     Active Substance: VENLAFAXINE HYDROCHLORIDE
     Indication: Product used for unknown indication
     Dosage: UNK UNKNOWN, UNKNOWN
     Route: 065
  12. ABILIFY [Concomitant]
     Active Substance: ARIPIPRAZOLE
     Indication: Product used for unknown indication
     Dosage: UNK UNKNOWN, UNKNOWN
     Route: 065
  13. METOPROLOL [Concomitant]
     Active Substance: METOPROLOL
     Indication: Product used for unknown indication
     Dosage: UNK UNKNOWN, UNKNOWN
     Route: 065
  14. LOSARTAN [Concomitant]
     Active Substance: LOSARTAN
     Indication: Product used for unknown indication
     Dosage: UNK UNKNOWN, UNKNOWN
     Route: 065

REACTIONS (5)
  - Borderline personality disorder [Not Recovered/Not Resolved]
  - Condition aggravated [Not Recovered/Not Resolved]
  - Weight decreased [Not Recovered/Not Resolved]
  - Depression [Unknown]
  - Off label use [Not Recovered/Not Resolved]

NARRATIVE: CASE EVENT DATE: 20220101
